FAERS Safety Report 9767845 (Version 2)
Quarter: 2014Q1

REPORT INFORMATION
  Report Type: Spontaneous
  Country: US (occurrence: US)
  Receive Date: 20131217
  Receipt Date: 20140310
  Transmission Date: 20141002
  Serious: Yes (Other)
  Sender: FDA-Public Use
  Company Number: US-ABBVIE-13P-163-1179285-00

PATIENT
  Age: 46 Year
  Sex: Male
  Weight: 102.15 kg

DRUGS (2)
  1. HUMIRA [Suspect]
     Indication: PSORIASIS
     Dates: start: 20111012, end: 20120924
  2. HUMIRA [Suspect]
     Dates: start: 20120924, end: 20130102

REACTIONS (2)
  - Tonsillar hypertrophy [Recovering/Resolving]
  - Mantle cell lymphoma stage IV [Not Recovered/Not Resolved]
